FAERS Safety Report 7207898-2 (Version None)
Quarter: 2010Q4

REPORT INFORMATION
  Report Type: 
  Country: None (occurrence: None)
  Receive Date: 20101221
  Receipt Date: 20101206
  Transmission Date: 20110411
  Serious: Yes (Hospitalization, Other)
  Sender: FDA-Public Use
  Company Number: AUR-APL-2010-03072

PATIENT
  Age: 16 Year
  Sex: Female
  Weight: 70 kg

DRUGS (2)
  1. CITALOPRAM HYDROBROMIDE [Suspect]
     Indication: DEPRESSION
     Dosage: 10MG - ORAL
     Route: 048
     Dates: start: 20101001, end: 20101102
  2. ORAL CONTRACEPTIVE NOS [Concomitant]

REACTIONS (3)
  - OVERDOSE [None]
  - PARANOIA [None]
  - SELF-INJURIOUS IDEATION [None]
